FAERS Safety Report 5586321-8 (Version None)
Quarter: 2008Q1

REPORT INFORMATION
  Report Type: 
  Country: None (occurrence: None)
  Receive Date: 20080110
  Receipt Date: 20080107
  Transmission Date: 20080703
  Serious: Yes (Other)
  Sender: FDA-Public Use
  Company Number: GB-JNJFOC-20080101383

PATIENT
  Sex: Female
  Weight: 45 kg

DRUGS (9)
  1. REMICADE [Suspect]
     Indication: RHEUMATOID ARTHRITIS
     Route: 042
  2. METHOTREXATE [Concomitant]
  3. PREDNISOLONE [Concomitant]
  4. CALCIUM AND VITAMIN D [Concomitant]
  5. CO-DYDRAMOL [Concomitant]
  6. FOLIC ACID [Concomitant]
  7. FOSAMAX [Concomitant]
  8. METOCLOPRAMIDE [Concomitant]
  9. MELOXICAM [Concomitant]

REACTIONS (1)
  - CARCINOMA IN SITU OF SKIN [None]
